FAERS Safety Report 4641208-X (Version None)
Quarter: 2005Q2

REPORT INFORMATION
  Report Type: 
  Country: None (occurrence: None)
  Receive Date: 20050421
  Receipt Date: 20050407
  Transmission Date: 20051028
  Serious: Yes (Death, Life-Threatening)
  Sender: FDA-Public Use
  Company Number: SE-JNJFOC-20050402493

PATIENT
  Age: 37 Year
  Sex: Male
  Weight: 83 kg

DRUGS (2)
  1. REMICADE [Suspect]
     Route: 042
  2. CORTISONE [Concomitant]

REACTIONS (4)
  - PERITONITIS [None]
  - PULMONARY OEDEMA [None]
  - PULMONARY SEPSIS [None]
  - SEPSIS [None]
